FAERS Safety Report 10903611 (Version 1)
Quarter: 2015Q1

REPORT INFORMATION
  Report Type: Spontaneous
  Country: US (occurrence: US)
  Receive Date: 20150311
  Receipt Date: 20150311
  Transmission Date: 20150721
  Serious: No
  Sender: FDA-Public Use
  Company Number: US-BIOGENIDEC-2015BI027776

PATIENT
  Age: 75 Year
  Sex: Female

DRUGS (4)
  1. METOPROLOL-HYDROCHLOROTHIAZIDE [Concomitant]
  2. CLOPIDOGREL BISULFATE. [Concomitant]
     Active Substance: CLOPIDOGREL BISULFATE
  3. TECFIDERA [Suspect]
     Active Substance: DIMETHYL FUMARATE
     Indication: MULTIPLE SCLEROSIS
     Route: 048
  4. PRIMIDONE. [Concomitant]
     Active Substance: PRIMIDONE

REACTIONS (2)
  - Paranasal sinus discomfort [Unknown]
  - Headache [Unknown]

NARRATIVE: CASE EVENT DATE: 20150218
